FAERS Safety Report 25498055 (Version 3)
Quarter: 2025Q3

REPORT INFORMATION
  Report Type: Spontaneous
  Country: CA (occurrence: CA)
  Receive Date: 20250701
  Receipt Date: 20250918
  Transmission Date: 20251020
  Serious: Yes (Life-Threatening, Hospitalization, Other)
  Sender: Kenvue
  Company Number: CA-KENVUE-20250610362

PATIENT

DRUGS (72)
  1. ACETAMINOPHEN [Suspect]
     Active Substance: ACETAMINOPHEN
     Indication: Neuralgia
     Route: 065
  2. ACETAMINOPHEN [Suspect]
     Active Substance: ACETAMINOPHEN
     Indication: Pain
     Route: 065
  3. ACETAMINOPHEN [Suspect]
     Active Substance: ACETAMINOPHEN
     Indication: Neuralgia
     Dosage: 3900.0 MILLIGRAM, ONCE A DAY (1 EVERY 1 DAYS)
     Route: 065
  4. ACETAMINOPHEN [Suspect]
     Active Substance: ACETAMINOPHEN
     Indication: Guillain-Barre syndrome
     Dosage: 2600.0 MILLIGRAM, ONCE A DAY (1 EVERY 1 DAYS)
     Route: 065
  5. ACETAMINOPHEN [Suspect]
     Active Substance: ACETAMINOPHEN
     Indication: Neuralgia
     Route: 062
  6. DICLOFENAC SODIUM [Suspect]
     Active Substance: DICLOFENAC SODIUM
     Indication: Neuralgia
     Route: 065
  7. FENTANYL [Suspect]
     Active Substance: FENTANYL
     Indication: Neuralgia
     Dosage: 37.5 MILLIGRAM, ONCE A DAY
     Route: 062
  8. FENTANYL [Suspect]
     Active Substance: FENTANYL
     Indication: Pain
  9. FENTANYL [Suspect]
     Active Substance: FENTANYL
     Indication: Guillain-Barre syndrome
  10. GABAPENTIN [Suspect]
     Active Substance: GABAPENTIN
     Indication: Neuralgia
     Route: 048
  11. GABAPENTIN [Suspect]
     Active Substance: GABAPENTIN
     Indication: Product used for unknown indication
     Route: 065
  12. GABAPENTIN [Suspect]
     Active Substance: GABAPENTIN
     Indication: Guillain-Barre syndrome
     Dosage: 3600.0 MILLIGRAM, ONCE A DAY (1 EVERY 1 DAYS)
     Route: 065
  13. GABAPENTIN [Suspect]
     Active Substance: GABAPENTIN
     Indication: Acute respiratory failure
     Dosage: 1200.0 MILLIGRAM, ONCE A DAY (1 EVERY 1 DAYS)
     Route: 048
  14. GABAPENTIN [Suspect]
     Active Substance: GABAPENTIN
     Dosage: 1800.0 MILLIGRAM, ONCE A DAY (1 EVERY 1 DAYS)
     Route: 048
  15. GABAPENTIN [Suspect]
     Active Substance: GABAPENTIN
     Dosage: 300.0 MILLIGRAM, ONCE A DAY (1 EVERY 1 DAYS)
     Route: 048
  16. GABAPENTIN [Suspect]
     Active Substance: GABAPENTIN
     Route: 065
  17. GABAPENTIN [Suspect]
     Active Substance: GABAPENTIN
     Dosage: 900.0 MILLIGRAM, ONCE A DAY (1 EVERY 1 DAYS)
     Route: 065
  18. GABAPENTIN [Suspect]
     Active Substance: GABAPENTIN
     Dosage: 3900.0 MILLIGRAM, ONCE A DAY (1 EVERY 1 DAYS)
     Route: 065
  19. GABAPENTIN [Suspect]
     Active Substance: GABAPENTIN
     Dosage: 300.0 MILLIGRAM, ONCE A DAY (1 EVERY 1 DAYS)
     Route: 065
  20. HYDROMORPHONE [Suspect]
     Active Substance: HYDROMORPHONE
     Indication: Neuralgia
     Route: 048
  21. HYDROMORPHONE [Suspect]
     Active Substance: HYDROMORPHONE
     Route: 041
  22. HYDROMORPHONE [Suspect]
     Active Substance: HYDROMORPHONE
     Route: 065
  23. HYDROMORPHONE [Suspect]
     Active Substance: HYDROMORPHONE
     Dosage: 7 MILLIGRAM, ONCE A DAY (1 EVERY 1 DAYS)
     Route: 065
  24. HYDROMORPHONE HYDROCHLORIDE [Suspect]
     Active Substance: HYDROMORPHONE HYDROCHLORIDE
     Indication: Neuralgia
     Route: 048
  25. HYDROMORPHONE HYDROCHLORIDE [Suspect]
     Active Substance: HYDROMORPHONE HYDROCHLORIDE
     Indication: Neuralgia
     Route: 065
  26. IBUPROFEN [Suspect]
     Active Substance: IBUPROFEN
     Indication: Neuralgia
     Dosage: 1600 MILLIGRAM, ONCE A DAY (1 EVERY 1 DAYS)
     Route: 042
  27. IBUPROFEN [Suspect]
     Active Substance: IBUPROFEN
     Indication: Guillain-Barre syndrome
     Route: 065
  28. IBUPROFEN [Suspect]
     Active Substance: IBUPROFEN
     Indication: Acute respiratory failure
     Route: 065
  29. HUMAN IMMUNOGLOBULIN G [Suspect]
     Active Substance: HUMAN IMMUNOGLOBULIN G
     Indication: Guillain-Barre syndrome
     Dosage: 400 MILLIGRAM/KILOGRAM, ONCE A DAY (1 EVERY 1 DAYS)
     Route: 041
  30. KETAMINE HYDROCHLORIDE [Suspect]
     Active Substance: KETAMINE HYDROCHLORIDE
     Indication: Neuralgia
     Route: 042
  31. KETAMINE HYDROCHLORIDE [Suspect]
     Active Substance: KETAMINE HYDROCHLORIDE
     Route: 048
  32. LIDOCAINE [Suspect]
     Active Substance: LIDOCAINE
     Indication: Neuralgia
     Route: 061
  33. NABILONE [Suspect]
     Active Substance: NABILONE
     Indication: Neuralgia
     Route: 042
  34. NABILONE [Suspect]
     Active Substance: NABILONE
     Indication: Pain
     Route: 042
  35. NABILONE [Suspect]
     Active Substance: NABILONE
     Indication: Guillain-Barre syndrome
     Dosage: 6 MILLIGRAM, ONCE A DAY (1 EVERY 1 DAYS)
     Route: 065
  36. NABILONE [Suspect]
     Active Substance: NABILONE
     Dosage: 6 MILLIGRAM, ONCE A DAY (1 EVERY 1 DAYS)
     Route: 065
  37. NABILONE [Suspect]
     Active Substance: NABILONE
     Dosage: 2 MILLIGRAM, ONCE A DAY (1 EVERY 1 DAYS)
     Route: 065
  38. OLANZAPINE [Suspect]
     Active Substance: OLANZAPINE
     Indication: Product used for unknown indication
     Route: 065
  39. PHENYTOIN [Suspect]
     Active Substance: PHENYTOIN
     Indication: Neuralgia
     Dosage: 1500 MILLIGRAM, ONCE A DAY (1 EVERY 1 DAYS)
     Route: 065
  40. VENLAFAXINE HYDROCHLORIDE [Suspect]
     Active Substance: VENLAFAXINE HYDROCHLORIDE
     Indication: Neuralgia
     Route: 065
  41. ZOPICLONE [Suspect]
     Active Substance: ZOPICLONE
     Indication: Neuralgia
     Route: 065
  42. ZOPICLONE [Suspect]
     Active Substance: ZOPICLONE
     Route: 065
  43. BUPIVACAINE [Concomitant]
     Active Substance: BUPIVACAINE
     Indication: Neuralgia
     Route: 065
  44. DICLOFENAC [Suspect]
     Active Substance: DICLOFENAC
     Indication: Pain
     Route: 065
  45. DICLOFENAC [Suspect]
     Active Substance: DICLOFENAC
     Indication: Neuralgia
     Route: 065
  46. DICLOFENAC [Suspect]
     Active Substance: DICLOFENAC
     Indication: Guillain-Barre syndrome
     Route: 065
  47. DILAUDID [Suspect]
     Active Substance: HYDROMORPHONE HYDROCHLORIDE
     Indication: Pain
     Dosage: 7.0 MILLIGRAM, ONCE A DAY (1 EVERY 1 DAYS)
     Route: 065
  48. DILAUDID [Suspect]
     Active Substance: HYDROMORPHONE HYDROCHLORIDE
     Indication: Neuralgia
     Route: 065
  49. DILAUDID [Suspect]
     Active Substance: HYDROMORPHONE HYDROCHLORIDE
     Indication: Guillain-Barre syndrome
     Route: 065
  50. FENTANYL [Suspect]
     Active Substance: FENTANYL
     Indication: Pain
     Dosage: 25.0 MILLIGRAM, EVERY HOUR (1 EVERY 1 HOURS)
     Route: 065
  51. FENTANYL [Suspect]
     Active Substance: FENTANYL
     Indication: Neuralgia
     Route: 065
  52. FENTANYL [Suspect]
     Active Substance: FENTANYL
     Indication: Guillain-Barre syndrome
  53. KETAMINE [Suspect]
     Active Substance: KETAMINE
     Indication: Neuralgia
     Dosage: 40.0 MILLIGRAM, ONCE A DAY (1 EVERY 1 DAYS)
     Route: 065
  54. KETAMINE [Suspect]
     Active Substance: KETAMINE
     Indication: Guillain-Barre syndrome
     Dosage: 30.0 MILLIGRAM, ONCE A DAY (1 EVERY 1 DAYS)
     Route: 042
  55. MORPHINE SULFATE [Concomitant]
     Active Substance: MORPHINE SULFATE
     Indication: Neuralgia
     Route: 065
  56. NORTRIPTYLINE [Concomitant]
     Active Substance: NORTRIPTYLINE
     Indication: Neuralgia
     Route: 065
  57. OLANZAPINE [Suspect]
     Active Substance: OLANZAPINE
     Indication: Neuralgia
     Dosage: 2.5 MILLIGRAM, ONCE A DAY (1 EVERY 1 DAYS)
     Route: 065
  58. OLANZAPINE [Suspect]
     Active Substance: OLANZAPINE
     Indication: Guillain-Barre syndrome
  59. OLANZAPINE [Suspect]
     Active Substance: OLANZAPINE
     Indication: Neuralgia
     Dosage: 3.0 MILLIGRAM, ONCE A DAY (1 EVERY 1 DAYS)
     Route: 065
  60. OLANZAPINE [Suspect]
     Active Substance: OLANZAPINE
     Indication: Guillain-Barre syndrome
  61. VENLAFAXINE HYDROCHLORIDE [Suspect]
     Active Substance: VENLAFAXINE HYDROCHLORIDE
     Indication: Neuralgia
     Route: 065
  62. VENLAFAXINE HYDROCHLORIDE [Suspect]
     Active Substance: VENLAFAXINE HYDROCHLORIDE
     Indication: Neuralgia
     Route: 065
  63. VENLAFAXINE HYDROCHLORIDE [Suspect]
     Active Substance: VENLAFAXINE HYDROCHLORIDE
     Indication: Guillain-Barre syndrome
  64. VENLAFAXINE HYDROCHLORIDE [Suspect]
     Active Substance: VENLAFAXINE HYDROCHLORIDE
     Indication: Neuralgia
     Route: 065
  65. VENLAFAXINE HYDROCHLORIDE [Suspect]
     Active Substance: VENLAFAXINE HYDROCHLORIDE
     Indication: Guillain-Barre syndrome
  66. VOLTAREN [Suspect]
     Active Substance: DICLOFENAC SODIUM
     Indication: Neuralgia
     Route: 065
  67. XYLOCAINE [Suspect]
     Active Substance: LIDOCAINE HYDROCHLORIDE
     Indication: Pain
     Route: 065
  68. XYLOCAINE [Suspect]
     Active Substance: LIDOCAINE HYDROCHLORIDE
     Indication: Neuralgia
     Route: 065
  69. XYLOCAINE [Suspect]
     Active Substance: LIDOCAINE HYDROCHLORIDE
     Indication: Guillain-Barre syndrome
     Route: 065
  70. XYLOCAINE [Suspect]
     Active Substance: LIDOCAINE HYDROCHLORIDE
     Route: 065
  71. XYLOCAINE [Suspect]
     Active Substance: LIDOCAINE HYDROCHLORIDE
     Route: 065
  72. XYLOCAINE [Suspect]
     Active Substance: LIDOCAINE HYDROCHLORIDE
     Dosage: 3.84 MILLIGRAM, EVERY HOUR (1 EVERY 1 HOURS)
     Route: 041

REACTIONS (4)
  - Inspiratory capacity decreased [Unknown]
  - Incorrect dose administered [Unknown]
  - Off label use [Unknown]
  - Drug ineffective [Unknown]
